FAERS Safety Report 7112367-4 (Version None)
Quarter: 2010Q4

REPORT INFORMATION
  Report Type: 
  Country: None (occurrence: None)
  Receive Date: 20101119
  Receipt Date: 20100921
  Transmission Date: 20110411
  Serious: No
  Sender: FDA-Public Use
  Company Number: A0882355A

PATIENT
  Age: 65 Year
  Sex: Male

DRUGS (4)
  1. AVODART [Suspect]
     Dosage: 1CAP PER DAY
     Route: 048
     Dates: end: 20100917
  2. CRESTOR [Concomitant]
  3. TOPROL-XL [Concomitant]
  4. PLAVIX [Concomitant]

REACTIONS (4)
  - LOCAL SWELLING [None]
  - PRURITUS [None]
  - SKIN BURNING SENSATION [None]
  - URTICARIA [None]
